FAERS Safety Report 8178351-7 (Version None)
Quarter: 2012Q1

REPORT INFORMATION
  Report Type: 
  Country: None (occurrence: None)
  Receive Date: 20120301
  Receipt Date: 20120123
  Transmission Date: 20120608
  Serious: Yes (Other)
  Sender: FDA-Public Use
  Company Number: US-JNJFOC-20120109852

PATIENT
  Sex: Female
  Weight: 52.16 kg

DRUGS (2)
  1. XARELTO [Suspect]
     Indication: ATRIAL FIBRILLATION
     Route: 048
     Dates: start: 20111201
  2. PLAVIX [Concomitant]
     Indication: ANTIPLATELET THERAPY
     Route: 048

REACTIONS (5)
  - MUSCULAR WEAKNESS [None]
  - BLOOD IRON DECREASED [None]
  - GAIT DISTURBANCE [None]
  - CARDIOVERSION [None]
  - FATIGUE [None]
